FAERS Safety Report 16328349 (Version 3)
Quarter: 2021Q4

REPORT INFORMATION
  Report Type: Other
  Country: US (occurrence: None)
  Receive Date: 20190518
  Receipt Date: 20211208
  Transmission Date: 20220303
  Serious: Yes (Other)
  Sender: FDA-Public Use
  Company Number: US-ROCHE-1974275

PATIENT
  Sex: Female

DRUGS (2)
  1. RITUXAN [Suspect]
     Active Substance: RITUXIMAB
     Indication: Multiple sclerosis
     Dosage: DAY 1 AND DAY 15?30/SEP/2015, 04/MAR/2015,18/FEB/2015, 01/FEB/2016, 23/AUG/2017,15/FEB/2016, 08/MAR/
     Route: 042
     Dates: start: 20150906
  2. RITUXAN [Suspect]
     Active Substance: RITUXIMAB
     Indication: Demyelination
     Route: 042

REACTIONS (3)
  - Deafness [Unknown]
  - Intentional product use issue [Unknown]
  - Off label use [Unknown]
